FAERS Safety Report 23811799 (Version 1)
Quarter: 2024Q2

REPORT INFORMATION
  Report Type: Spontaneous
  Country: US (occurrence: US)
  Receive Date: 20240503
  Receipt Date: 20240503
  Transmission Date: 20240716
  Serious: No
  Sender: FDA-Public Use
  Company Number: US-UCBSA-2023030831

PATIENT
  Age: 7 Decade
  Sex: Female

DRUGS (2)
  1. CIMZIA [Suspect]
     Active Substance: CERTOLIZUMAB PEGOL
     Indication: Cutaneous sarcoidosis
     Dosage: 60 MILLIGRAM, EV 4 WEEKS (0.3 ML), INJECTED INTO 2 LESIONS (120 MG TOTAL DOSE PER TREATMENT))
     Route: 026
  2. CIMZIA [Suspect]
     Active Substance: CERTOLIZUMAB PEGOL
     Indication: Off label use

REACTIONS (3)
  - Injection site discomfort [Unknown]
  - Drug effective for unapproved indication [Unknown]
  - Off label use [Unknown]
